APPROVED DRUG PRODUCT: ACYCLOVIR
Active Ingredient: ACYCLOVIR
Strength: 200MG/5ML
Dosage Form/Route: SUSPENSION;ORAL
Application: A215724 | Product #001 | TE Code: AB
Applicant: RUBICON RESEARCH LTD
Approved: Aug 18, 2022 | RLD: No | RS: No | Type: RX